FAERS Safety Report 18810401 (Version 1)
Quarter: 2021Q1

REPORT INFORMATION
  Report Type: Spontaneous
  Country: FR (occurrence: FR)
  Receive Date: 20210130
  Receipt Date: 20210130
  Transmission Date: 20210419
  Serious: Yes (Hospitalization)
  Sender: FDA-Public Use
  Company Number: FR-ROCHE-2757459

PATIENT
  Age: 17 Year
  Sex: Male

DRUGS (1)
  1. RIVOTRIL [Suspect]
     Active Substance: CLONAZEPAM
     Indication: PRODUCT USED FOR UNKNOWN INDICATION
     Dosage: 1 MG / 1 ML CONCENTRATE FOR SOLUTION FOR INJECTION IN AMPOULES
     Route: 048

REACTIONS (3)
  - Tachycardia [Recovered/Resolved]
  - Coma [Recovered/Resolved]
  - Drug abuse [Unknown]
